FAERS Safety Report 8046044-2 (Version None)
Quarter: 2012Q1

REPORT INFORMATION
  Report Type: 
  Country: None (occurrence: None)
  Receive Date: 20120113
  Receipt Date: 20120110
  Transmission Date: 20120608
  Serious: Yes (Life-Threatening, Hospitalization, Other)
  Sender: FDA-Public Use
  Company Number: FR-ELI_LILLY_AND_COMPANY-FR201108000615

PATIENT
  Sex: Male
  Weight: 68.5 kg

DRUGS (5)
  1. ALIMTA [Suspect]
     Dosage: UNK
     Dates: start: 20110318, end: 20110318
  2. CARBOPLATIN [Concomitant]
     Indication: BRONCHIAL CARCINOMA
     Dosage: UNK
     Dates: end: 20110318
  3. CORDARONE [Concomitant]
     Indication: ATRIAL FIBRILLATION
     Dosage: 200 MG, QD
     Route: 048
     Dates: start: 20010201, end: 20110701
  4. CORTICOSTEROIDS [Concomitant]
     Dosage: UNK, UNKNOWN
     Route: 065
  5. ALIMTA [Suspect]
     Indication: BRONCHIAL CARCINOMA
     Dosage: UNK UNK, UNKNOWN
     Route: 042
     Dates: start: 20110101

REACTIONS (4)
  - INTERSTITIAL LUNG DISEASE [None]
  - ACUTE RESPIRATORY DISTRESS SYNDROME [None]
  - LUNG INFECTION [None]
  - SEPTIC SHOCK [None]
